FAERS Safety Report 19430309 (Version 2)
Quarter: 2021Q2

REPORT INFORMATION
  Report Type: Report from Study
  Country: US (occurrence: US)
  Receive Date: 20210617
  Receipt Date: 20210629
  Transmission Date: 20210717
  Serious: Yes (Hospitalization)
  Sender: FDA-Public Use
  Company Number: US-NEUROCRINE BIOSCIENCES INC.-2021NBI03037

PATIENT

DRUGS (4)
  1. IBUPROFEN. [Concomitant]
     Active Substance: IBUPROFEN
     Indication: HEADACHE
     Dosage: 800 MILLIGRAM, QD
     Route: 048
     Dates: start: 1991
  2. VALBENAZINE [Suspect]
     Active Substance: VALBENAZINE
     Indication: HUNTINGTON^S DISEASE
     Dosage: 80 MILLIGRAM, QD
     Route: 048
     Dates: start: 20210210
  3. SERTRALINE [Concomitant]
     Active Substance: SERTRALINE HYDROCHLORIDE
     Indication: ANXIETY
     Dosage: 50 MILLIGRAM, QD
     Route: 048
     Dates: start: 20191016
  4. MELATONIN [Concomitant]
     Active Substance: MELATONIN
     Indication: INSOMNIA
     Dosage: 20 MILLIGRAM, QD
     Route: 048
     Dates: start: 20201014

REACTIONS (1)
  - Road traffic accident [Recovered/Resolved]

NARRATIVE: CASE EVENT DATE: 20210608
